FAERS Safety Report 22084691 (Version 1)
Quarter: 2023Q1

REPORT INFORMATION
  Report Type: Spontaneous
  Country: US (occurrence: US)
  Receive Date: 20230310
  Receipt Date: 20230310
  Transmission Date: 20230418
  Serious: No
  Sender: FDA-Public Use
  Company Number: US-ALKERMES INC.-ALK-2023-000130

PATIENT
  Sex: Male

DRUGS (2)
  1. VIVITROL [Suspect]
     Active Substance: NALTREXONE
     Indication: Alcoholism
     Dosage: 380 MILLIGRAM, QMO
     Route: 030
     Dates: start: 20230308
  2. VIVITROL [Suspect]
     Active Substance: NALTREXONE
     Indication: Obesity
     Dosage: 380 MILLIGRAM, QMO
     Route: 030
     Dates: start: 20221228

REACTIONS (5)
  - Off label use [Not Recovered/Not Resolved]
  - Injection site reaction [Recovered/Resolved]
  - Injection site induration [Recovered/Resolved]
  - Injection site mass [Recovered/Resolved]
  - Treatment noncompliance [Not Recovered/Not Resolved]
